FAERS Safety Report 4549179-1 (Version None)
Quarter: 2005Q1

REPORT INFORMATION
  Report Type: 
  Country: None (occurrence: None)
  Receive Date: 20050111
  Receipt Date: 20050106
  Transmission Date: 20050727
  Serious: Yes (Hospitalization)
  Sender: FDA-Public Use
  Company Number: PHNR2005AU00445

PATIENT
  Sex: Female

DRUGS (1)
  1. FAMVIR [Suspect]
     Indication: HERPES SIMPLEX
     Dosage: 250 MG, TID
     Route: 048

REACTIONS (5)
  - DIARRHOEA [None]
  - NAUSEA [None]
  - PALPITATIONS [None]
  - THROMBOPHLEBITIS SUPERFICIAL [None]
  - THROMBOSIS [None]
